FAERS Safety Report 6062649-2 (Version None)
Quarter: 2009Q1

REPORT INFORMATION
  Report Type: 
  Country: None (occurrence: None)
  Receive Date: 20090203
  Receipt Date: 20090123
  Transmission Date: 20090719
  Serious: Yes (Disabling)
  Sender: FDA-Public Use
  Company Number: US-PFIZER INC-2006044711

PATIENT
  Sex: Male
  Weight: 178.23 kg

DRUGS (8)
  1. VIAGRA [Suspect]
     Indication: ERECTILE DYSFUNCTION
     Dosage: 2PRN  INTERVAL:  PRN
     Route: 048
     Dates: start: 20040101
  2. XANAX [Suspect]
     Indication: ANXIETY
     Dosage: 2 MG, AS NEEDED
     Route: 048
  3. GEODON [Suspect]
     Dosage: UNK
  4. PAXIL [Concomitant]
     Route: 048
  5. KLONOPIN [Concomitant]
     Route: 048
  6. DARVOCET [Concomitant]
     Route: 048
  7. ATENOLOL [Concomitant]
     Route: 048
  8. NIFEDIPINE [Concomitant]
     Route: 048

REACTIONS (5)
  - BACK INJURY [None]
  - DRUG INEFFECTIVE [None]
  - FALL [None]
  - MUSCLE STRAIN [None]
  - VERTEBRAL INJURY [None]
